FAERS Safety Report 14979547 (Version 1)
Quarter: 2018Q2

REPORT INFORMATION
  Report Type: Report from Study
  Country: US (occurrence: US)
  Receive Date: 20180606
  Receipt Date: 20180606
  Transmission Date: 20180711
  Serious: Yes (Death)
  Sender: FDA-Public Use
  Company Number: US-PFIZER INC-2018228892

PATIENT

DRUGS (4)
  1. DEXAMETHASONE. [Concomitant]
     Active Substance: DEXAMETHASONE
     Indication: ANTIEMETIC SUPPORTIVE CARE
     Dosage: UNK, CYCLIC (BEFORE EACH WEEKLY DOSE OF CHEMOTHERAPY)
  2. IRINOTECAN HCL [Suspect]
     Active Substance: IRINOTECAN HYDROCHLORIDE
     Indication: MALIGNANT GLIOMA
     Dosage: UNK, CYCLIC (WEEKLY FOR 4 WEEKS; THIS WAS FOLLOWED BY A 2-WEEK REST)
  3. ONDANSETRON [Concomitant]
     Active Substance: ONDANSETRON
     Indication: ANTIEMETIC SUPPORTIVE CARE
     Dosage: UNK, CYCLIC (BEFORE EACH WEEKLY DOSE OF CHEMOTHERAPY)
  4. CARMUSTINE [Suspect]
     Active Substance: CARMUSTINE
     Indication: MALIGNANT GLIOMA
     Dosage: 100 MG/M2, CYCLIC (1-H INFUSION APPROXIMATELY AN HOUR BEFORE THE FIRST CPT-11 DOSE OF EACH CYCLE)

REACTIONS (1)
  - Sepsis [Fatal]
